FAERS Safety Report 8581666-1 (Version None)
Quarter: 2012Q3

REPORT INFORMATION
  Report Type: 
  Country: None (occurrence: None)
  Receive Date: 20120809
  Receipt Date: 20120730
  Transmission Date: 20120928
  Serious: No
  Sender: FDA-Public Use
  Company Number: US-BAYER-2012-077607

PATIENT
  Age: 67 Year
  Sex: Female

DRUGS (2)
  1. PROZAC [Concomitant]
     Dosage: UNK
  2. BETASERON [Suspect]
     Indication: MULTIPLE SCLEROSIS
     Dosage: 0.25 MG, QOD
     Route: 058
     Dates: start: 20120401

REACTIONS (2)
  - ALOPECIA [None]
  - DEPRESSION [None]
